FAERS Safety Report 22324093 (Version 8)
Quarter: 2025Q4

REPORT INFORMATION
  Report Type: Report from Study
  Country: CA (occurrence: CA)
  Receive Date: 20230516
  Receipt Date: 20251221
  Transmission Date: 20260117
  Serious: Yes (Other)
  Sender: PFIZER
  Company Number: CA-PFIZER INC-202201056682

PATIENT
  Age: 58 Year
  Sex: Female
  Weight: 61.224 kg

DRUGS (6)
  1. ABRILADA [Suspect]
     Active Substance: ADALIMUMAB-AFZB
     Indication: Crohn^s disease
     Dosage: 1 DF WEEK 0: 160MG WEEK 2: 80 MG 40MG EOW STARTING WEEK 4
     Route: 058
     Dates: start: 20220626
  2. ABRILADA [Suspect]
     Active Substance: ADALIMUMAB-AFZB
     Dosage: 1 DF WEEK 0: 160MG WEEK 2: 80 MG 40MG EOW STARTING WEEK 4
     Route: 058
     Dates: start: 20220726
  3. ABRILADA [Suspect]
     Active Substance: ADALIMUMAB-AFZB
     Dosage: 1 DF WEEK 0: 160MG WEEK 2: 80 MG 40MG EOW STARTING WEEK 4
     Route: 058
     Dates: start: 20220810
  4. ABRILADA [Suspect]
     Active Substance: ADALIMUMAB-AFZB
     Dosage: 40 MG, WEEKLY
     Route: 058
  5. ABRILADA [Suspect]
     Active Substance: ADALIMUMAB-AFZB
     Dosage: 40 MG, WEEKLY
     Route: 058
     Dates: start: 202304, end: 2025
  6. ABRILADA [Suspect]
     Active Substance: ADALIMUMAB-AFZB
     Dosage: 80 MG, WEEKLY
     Route: 042
     Dates: start: 2025

REACTIONS (16)
  - Pneumonia [Recovered/Resolved]
  - Tooth fracture [Unknown]
  - Therapeutic response shortened [Unknown]
  - Drug level below therapeutic [Recovering/Resolving]
  - Condition aggravated [Not Recovered/Not Resolved]
  - Dizziness [Recovered/Resolved]
  - Nausea [Recovered/Resolved]
  - Headache [Unknown]
  - Weight decreased [Unknown]
  - Decreased appetite [Unknown]
  - Arthralgia [Not Recovered/Not Resolved]
  - Pain [Unknown]
  - Anal fissure [Unknown]
  - Off label use [Unknown]
  - Off label use [Unknown]
  - Incorrect dose administered [Unknown]

NARRATIVE: CASE EVENT DATE: 20220101
